FAERS Safety Report 4295145-3 (Version None)
Quarter: 2004Q1

REPORT INFORMATION
  Report Type: 
  Country: None (occurrence: None)
  Receive Date: 20040211
  Receipt Date: 20030425
  Transmission Date: 20041129
  Serious: Yes (Other)
  Sender: FDA-Public Use
  Company Number: US93072824A

PATIENT
  Age: 18 Year
  Sex: Male

DRUGS (3)
  1. HUMATROPE [Suspect]
     Indication: GROWTH RETARDATION
     Dosage: 2.7 MG DAY
     Dates: start: 19891010, end: 19921015
  2. SYNTROID  (LEVOTHYROXINE SODIUM) [Concomitant]
  3. TEGRETOL [Concomitant]

REACTIONS (2)
  - ARTHRALGIA [None]
  - BONE SARCOMA [None]
